FAERS Safety Report 7226783-3 (Version None)
Quarter: 2011Q1

REPORT INFORMATION
  Report Type: 
  Country: None (occurrence: None)
  Receive Date: 20110111
  Receipt Date: 20110111
  Transmission Date: 20110831
  Serious: Yes (Other)
  Sender: FDA-Public Use
  Company Number: None

PATIENT
  Age: 67 Year
  Sex: Female
  Weight: 81.8 kg

DRUGS (1)
  1. PRADAXA 150 MGM BI [Suspect]
     Indication: ATRIAL FIBRILLATION
     Dosage: 150 MGM BID PO
     Route: 048
     Dates: start: 20101215, end: 20101222

REACTIONS (1)
  - RECTAL HAEMORRHAGE [None]
